FAERS Safety Report 9393968 (Version 2)
Quarter: 2014Q2

REPORT INFORMATION
  Report Type: Spontaneous
  Country: IT (occurrence: IT)
  Receive Date: 20130710
  Receipt Date: 20140402
  Transmission Date: 20141212
  Serious: Yes (Other)
  Sender: FDA-Public Use
  Company Number: ALCN2013IT000441

PATIENT
  Age: 39 Year
  Sex: Female

DRUGS (1)
  1. TOBRAMYCIN [Suspect]
     Indication: CONJUNCTIVITIS BACTERIAL
     Dosage: UNK
     Route: 047
     Dates: start: 20130619, end: 20130619

REACTIONS (3)
  - Conjunctival oedema [Recovering/Resolving]
  - Eye irritation [Recovering/Resolving]
  - Eyelid oedema [Recovering/Resolving]
